FAERS Safety Report 9384228 (Version 2)
Quarter: 2013Q4

REPORT INFORMATION
  Report Type: Report from Study
  Country: CA (occurrence: CA)
  Receive Date: 20130705
  Receipt Date: 20131002
  Transmission Date: 20140711
  Serious: Yes (Other)
  Sender: FDA-Public Use
  Company Number: CA-JNJFOC-20130701432

PATIENT
  Sex: Female
  Weight: 58 kg

DRUGS (14)
  1. REMICADE [Suspect]
     Indication: CROHN^S DISEASE
     Route: 042
     Dates: start: 20130524
  2. REMICADE [Suspect]
     Indication: CROHN^S DISEASE
     Route: 042
     Dates: start: 20110921
  3. REMICADE [Suspect]
     Indication: CROHN^S DISEASE
     Route: 042
     Dates: start: 2010
  4. ACETYLSALICYLIC ACID [Concomitant]
     Route: 065
  5. EFFEXOR [Concomitant]
     Route: 065
  6. IMURAN [Concomitant]
     Route: 065
  7. PREDNISONE [Concomitant]
     Route: 065
  8. LIPITOR [Concomitant]
     Route: 065
  9. HYDROCHLOROTHIAZIDE [Concomitant]
     Route: 065
  10. RAMIPRIL [Concomitant]
     Route: 065
  11. FLAGYL [Concomitant]
     Route: 065
  12. ZANTAC [Concomitant]
     Route: 065
  13. ATENOLOL [Concomitant]
     Route: 065
  14. VASOTEC [Concomitant]
     Route: 065

REACTIONS (2)
  - Breast cancer [Unknown]
  - Post procedural infection [Recovered/Resolved]
